FAERS Safety Report 24971866 (Version 2)
Quarter: 2025Q3

REPORT INFORMATION
  Report Type: Report from Study
  Country: US (occurrence: None)
  Receive Date: 20250214
  Receipt Date: 20250816
  Transmission Date: 20251021
  Serious: Yes (Other)
  Sender: ALEXION PHARMACEUTICALS
  Company Number: US-AstraZeneca-2009SE11712

PATIENT
  Age: 67 Year
  Sex: Female
  Weight: 88.451 kg

DRUGS (3)
  1. NEXIUM [Suspect]
     Active Substance: ESOMEPRAZOLE MAGNESIUM
     Indication: Gastrooesophageal reflux disease
     Dosage: 40 MILLIGRAM, QD
     Dates: start: 2009
  2. NEXIUM [Suspect]
     Active Substance: ESOMEPRAZOLE MAGNESIUM
  3. PRILOSEC OTC [Suspect]
     Active Substance: OMEPRAZOLE MAGNESIUM

REACTIONS (18)
  - Middle ear effusion [Unknown]
  - Blindness unilateral [Unknown]
  - Deafness unilateral [Unknown]
  - Tympanic membrane perforation [Unknown]
  - Ossicle disorder [Unknown]
  - Ear pain [Unknown]
  - Cerebrovascular accident [Unknown]
  - Abdominal pain upper [Unknown]
  - Nausea [Unknown]
  - Seasonal allergy [Unknown]
  - Sinusitis [Unknown]
  - Blood pressure decreased [Unknown]
  - Weight increased [Unknown]
  - Dyspepsia [Unknown]
  - Asthma [Unknown]
  - Dyspnoea [Unknown]
  - Fall [Unknown]
  - Product dose omission issue [Unknown]

NARRATIVE: CASE EVENT DATE: 20110101
